FAERS Safety Report 4278084-3 (Version None)
Quarter: 2004Q1

REPORT INFORMATION
  Report Type: 
  Country: None (occurrence: None)
  Receive Date: 20040121
  Receipt Date: 20030731
  Transmission Date: 20041129
  Serious: Yes (Hospitalization)
  Sender: FDA-Public Use
  Company Number: 2003-08-0001

PATIENT
  Age: 25 Year
  Sex: Male
  Weight: 63 kg

DRUGS (2)
  1. SUBUTEX [Suspect]
     Indication: DRUG DEPENDENCE
     Dosage: 12 MG QD SUBLINGUAL
     Route: 060
     Dates: start: 20020708, end: 20030529
  2. METHADONE ORAL SOLUTION 2.5 ML [Concomitant]

REACTIONS (1)
  - ACUTE PSYCHOSIS [None]
